FAERS Safety Report 10040737 (Version 1)
Quarter: 2014Q1

REPORT INFORMATION
  Report Type: Spontaneous
  Country: US (occurrence: US)
  Receive Date: 20140327
  Receipt Date: 20140327
  Transmission Date: 20141002
  Serious: No
  Sender: FDA-Public Use
  Company Number: US-BAYER-2014-046212

PATIENT
  Age: 67 Year
  Sex: Female

DRUGS (1)
  1. EOVIST [Suspect]
     Indication: COMPUTERISED TOMOGRAM ABDOMEN
     Dosage: 6 ML, ONCE
     Route: 042
     Dates: start: 20140321, end: 20140321

REACTIONS (2)
  - Dyspnoea [Recovered/Resolved]
  - Rash macular [Recovered/Resolved]
